FAERS Safety Report 16225269 (Version 3)
Quarter: 2019Q4

REPORT INFORMATION
  Report Type: Spontaneous
  Country: US (occurrence: US)
  Receive Date: 20190422
  Receipt Date: 20191018
  Transmission Date: 20200122
  Serious: Yes (Hospitalization, Other)
  Sender: FDA-Public Use
  Company Number: US-ASTRAZENECA-2018SF47950

PATIENT
  Age: 69 Year
  Sex: Male
  Weight: 76.5 kg

DRUGS (33)
  1. NEXIUM [Suspect]
     Active Substance: ESOMEPRAZOLE MAGNESIUM
     Indication: GASTROOESOPHAGEAL REFLUX DISEASE
     Route: 048
     Dates: start: 2003
  2. NEXIUM [Suspect]
     Active Substance: ESOMEPRAZOLE MAGNESIUM
     Indication: GASTROOESOPHAGEAL REFLUX DISEASE
     Route: 048
     Dates: start: 2003, end: 2019
  3. DIAZEPAM. [Concomitant]
     Active Substance: DIAZEPAM
  4. DULOXETINE. [Concomitant]
     Active Substance: DULOXETINE
  5. NITROGLYCERIN. [Concomitant]
     Active Substance: NITROGLYCERIN
  6. NEXIUM [Suspect]
     Active Substance: ESOMEPRAZOLE MAGNESIUM
     Indication: GASTROOESOPHAGEAL REFLUX DISEASE
     Route: 048
     Dates: start: 20140204
  7. BEANO [Concomitant]
     Active Substance: ASPERGILLUS NIGER .ALPHA.-GALACTOSIDASE
  8. RAMIPRIL. [Concomitant]
     Active Substance: RAMIPRIL
  9. CLOPIDOGREL [Concomitant]
     Active Substance: CLOPIDOGREL BISULFATE
  10. ROSUVASTATIN. [Concomitant]
     Active Substance: ROSUVASTATIN
  11. ACETAMINOPHEN. [Concomitant]
     Active Substance: ACETAMINOPHEN
  12. PLAVIX [Concomitant]
     Active Substance: CLOPIDOGREL BISULFATE
  13. METOPROLOL. [Concomitant]
     Active Substance: METOPROLOL
  14. CRESTOR [Concomitant]
     Active Substance: ROSUVASTATIN CALCIUM
  15. SPIRONOLACTONE. [Concomitant]
     Active Substance: SPIRONOLACTONE
  16. LUNESTA [Concomitant]
     Active Substance: ESZOPICLONE
  17. ESZOPICLONE. [Concomitant]
     Active Substance: ESZOPICLONE
  18. LYRICA [Concomitant]
     Active Substance: PREGABALIN
  19. TRESIBA [Concomitant]
     Active Substance: INSULIN DEGLUDEC
  20. CELEBREX [Concomitant]
     Active Substance: CELECOXIB
  21. PRILOSEC [Suspect]
     Active Substance: OMEPRAZOLE MAGNESIUM
     Indication: GASTROOESOPHAGEAL REFLUX DISEASE
     Dosage: DRUG STARTED BEFORE 2003
     Route: 048
  22. TIZANIDINE. [Concomitant]
     Active Substance: TIZANIDINE
  23. NITROSTAT [Concomitant]
     Active Substance: NITROGLYCERIN
  24. ISOSORBIDE. [Concomitant]
     Active Substance: ISOSORBIDE
  25. AMIODARONE [Concomitant]
     Active Substance: AMIODARONE
  26. TRULICITY [Concomitant]
     Active Substance: DULAGLUTIDE
  27. ZANTAC [Concomitant]
     Active Substance: RANITIDINE HYDROCHLORIDE
  28. OXYCONTIN [Concomitant]
     Active Substance: OXYCODONE HYDROCHLORIDE
  29. CARVEDILOL. [Concomitant]
     Active Substance: CARVEDILOL
  30. HUMALOG [Concomitant]
     Active Substance: INSULIN LISPRO
  31. TRAZODONE [Concomitant]
     Active Substance: TRAZODONE HYDROCHLORIDE
  32. ZETIA [Concomitant]
     Active Substance: EZETIMIBE
  33. MODAFINIL. [Concomitant]
     Active Substance: MODAFINIL

REACTIONS (6)
  - Acute kidney injury [Unknown]
  - Chronic kidney disease [Not Recovered/Not Resolved]
  - Hyperparathyroidism secondary [Unknown]
  - Nephrogenic anaemia [Unknown]
  - Renal failure [Unknown]
  - Rebound acid hypersecretion [Unknown]

NARRATIVE: CASE EVENT DATE: 2016
